FAERS Safety Report 18858408 (Version 1)
Quarter: 2021Q1

REPORT INFORMATION
  Report Type: Spontaneous
  Country: US (occurrence: US)
  Receive Date: 20210205
  Receipt Date: 20210205
  Transmission Date: 20210420
  Serious: No
  Sender: FDA-Public Use
  Company Number: None

PATIENT
  Age: 31 Year
  Sex: Female
  Weight: 66.15 kg

DRUGS (6)
  1. SUBOXONE [Suspect]
     Active Substance: BUPRENORPHINE HYDROCHLORIDE\NALOXONE HYDROCHLORIDE
     Indication: THERAPY CHANGE
     Dosage: ?          QUANTITY:1 FILM;?
     Route: 060
     Dates: start: 20210130
  2. PROBIOTICS [Concomitant]
     Active Substance: PROBIOTICS NOS
  3. CLONAZEPAM. [Concomitant]
     Active Substance: CLONAZEPAM
  4. MAGNESIUM [Concomitant]
     Active Substance: MAGNESIUM
  5. VITAMIN D [Concomitant]
     Active Substance: VITAMIN D NOS
  6. VITAMIN C [Concomitant]
     Active Substance: ASCORBIC ACID

REACTIONS (3)
  - Aphthous ulcer [None]
  - Tongue ulceration [None]
  - Product dosage form issue [None]

NARRATIVE: CASE EVENT DATE: 20210201
